FAERS Safety Report 4635677-9 (Version None)
Quarter: 2005Q2

REPORT INFORMATION
  Report Type: 
  Country: None (occurrence: None)
  Receive Date: 20050414
  Receipt Date: 20050330
  Transmission Date: 20051028
  Serious: Yes (Hospitalization)
  Sender: FDA-Public Use
  Company Number: 6013927

PATIENT
  Age: 85 Year
  Sex: Female

DRUGS (7)
  1. LEVOTHYROXINE SODIUM [Suspect]
     Indication: HYPOTHYROIDISM
     Dosage: 0,500 DOSAGE FORMS (0,5 DOSAGE FORMS, 1 IN 1 D) ORAL
     Route: 048
     Dates: start: 20050129
  2. PREVISCAN (20 MG, TABLET) (FLUINDIONE) [Suspect]
     Indication: ARRHYTHMIA
     Dosage: 0,7500 DOSAGE FORMS (0,75 DOSAGE FORMS, 1 IN 1 D) ORAL
     Route: 048
     Dates: end: 20050228
  3. ACTONEL (TABLET) (RISEDRONATE SODIUM) [Concomitant]
  4. AMIODARONE (TABLET) (AMIODARONE HYDROCHLORIDE) [Concomitant]
  5. COVERSYL (TABLET) (PERINDOPRIL) [Concomitant]
  6. LASILIX (TABLET) (FUROSEMIDE) [Concomitant]
  7. NITROGLYCERIN [Concomitant]

REACTIONS (13)
  - ANAEMIA [None]
  - BRONCHITIS [None]
  - CARDIOMEGALY [None]
  - DRUG INTERACTION [None]
  - DYSPNOEA [None]
  - DYSPNOEA EXERTIONAL [None]
  - HAEMATOMA [None]
  - MELAENA [None]
  - ORTHOPNOEA [None]
  - PLATELET COUNT ABNORMAL [None]
  - PROTHROMBIN LEVEL DECREASED [None]
  - RESPIRATORY FAILURE [None]
  - TACHYCARDIA [None]
